FAERS Safety Report 25962729 (Version 1)
Quarter: 2025Q4

REPORT INFORMATION
  Report Type: Spontaneous
  Country: IR (occurrence: IR)
  Receive Date: 20251027
  Receipt Date: 20251027
  Transmission Date: 20260118
  Serious: Yes (Other)
  Sender: CHEPLAPHARM
  Company Number: IR-CHEPLA-2025012140

PATIENT
  Age: 46 Year
  Sex: Male

DRUGS (13)
  1. VALGANCICLOVIR [Suspect]
     Active Substance: VALGANCICLOVIR
     Indication: Cytomegalovirus infection reactivation
     Dosage: DAILY DOSE: 1000 MILLIGRAM
  2. VALGANCICLOVIR [Suspect]
     Active Substance: VALGANCICLOVIR
     Indication: Cytomegalovirus infection reactivation
     Dosage: DAILY DOSE: 1800 MILLIGRAM
  3. VALGANCICLOVIR [Suspect]
     Active Substance: VALGANCICLOVIR
     Indication: Cytomegalovirus infection reactivation
     Dosage: DAILY DOSE: 900 MILLIGRAM
  4. VALACYCLOVIR [Suspect]
     Active Substance: VALACYCLOVIR HYDROCHLORIDE
     Indication: Cytomegalovirus infection
  5. CYTARABINE [Concomitant]
     Active Substance: CYTARABINE
     Indication: Acute myeloid leukaemia
     Dosage: HIGH-DOSE
  6. BUSULFAN [Concomitant]
     Active Substance: BUSULFAN
     Indication: Stem cell transplant
     Dosage: DAYS -7 TO -4?DAILY DOSE: 3.2 MILLIGRAM/KG
     Route: 042
  7. FLUDARABINE [Concomitant]
     Active Substance: FLUDARABINE PHOSPHATE
     Indication: Stem cell transplant
     Dosage: DAYS -7 TO -3?DAILY DOSE: 30 MILLIGRAM/M?
  8. THYMOCYTE IMMUNE GLOBULIN NOS [Concomitant]
     Active Substance: THYMOCYTE IMMUNE GLOBULIN NOS
     Indication: Stem cell transplant
     Dosage: DAYS -3 TO -2?DAILY DOSE: 2.5 MILLIGRAM/KG
  9. CYCLOPHOSPHAMIDE [Concomitant]
     Active Substance: CYCLOPHOSPHAMIDE
     Indication: Prophylaxis against graft versus host disease
     Dosage: FROM DAY +3 TO +4?DAILY DOSE: 40 MILLIGRAM/KG
     Route: 042
  10. CYCLOSPORINE [Concomitant]
     Active Substance: CYCLOSPORINE
     Indication: Prophylaxis against graft versus host disease
     Dosage: DAY +5 TO +15?DAILY DOSE: 3 MILLIGRAM/KG
     Route: 042
  11. CYCLOSPORINE [Concomitant]
     Active Substance: CYCLOSPORINE
     Indication: Gastrointestinal haemorrhage
     Dosage: DAY +5 TO +15?DAILY DOSE: 3 MILLIGRAM/KG
     Route: 042
  12. METHYLPREDNISOLONE [Concomitant]
     Active Substance: METHYLPREDNISOLONE
     Indication: Gastrointestinal haemorrhage
  13. VINCRISTINE [Concomitant]
     Active Substance: VINCRISTINE
     Indication: Angiocentric lymphoma

REACTIONS (2)
  - Graft versus host disease [Recovered/Resolved]
  - Off label use [Unknown]
